FAERS Safety Report 16780435 (Version 2)
Quarter: 2021Q3

REPORT INFORMATION
  Report Type: Spontaneous
  Country: US (occurrence: US)
  Receive Date: 20190906
  Receipt Date: 20210910
  Transmission Date: 20211014
  Serious: No
  Sender: FDA-Public Use
  Company Number: US-ENDO PHARMACEUTICALS INC-2019-103366

PATIENT
  Sex: Female

DRUGS (3)
  1. LYRICA [Concomitant]
     Active Substance: PREGABALIN
     Indication: FIBROMYALGIA
  2. LIDOCAINE                          /00033402/ [Concomitant]
     Active Substance: LIDOCAINE
     Indication: PAIN
  3. OXYCODONE HYDROCHLORIDE, ACETAMINOPHEN [Suspect]
     Active Substance: ACETAMINOPHEN\OXYCODONE HYDROCHLORIDE
     Indication: PAIN
     Dosage: 1 DF, Q4H

REACTIONS (1)
  - Drug ineffective [Unknown]
